FAERS Safety Report 6109130-X (Version None)
Quarter: 2009Q1

REPORT INFORMATION
  Report Type: 
  Country: None (occurrence: None)
  Receive Date: 20090309
  Receipt Date: 20090309
  Transmission Date: 20090719
  Serious: Yes (Death)
  Sender: FDA-Public Use
  Company Number: None

PATIENT
  Sex: Male
  Weight: 63.5036 kg

DRUGS (2)
  1. AVELOX [Suspect]
     Indication: PNEUMONIA
     Dosage: 400 MG DAILY PO
     Route: 048
     Dates: start: 20090227
  2. AVELOX [Suspect]
     Indication: PNEUMONIA
     Dosage: 400 MG DAILY PO
     Route: 048
     Dates: start: 20090306

REACTIONS (4)
  - ALANINE AMINOTRANSFERASE INCREASED [None]
  - ASPARTATE AMINOTRANSFERASE INCREASED [None]
  - ATRIAL FIBRILLATION [None]
  - INTERNATIONAL NORMALISED RATIO INCREASED [None]
